FAERS Safety Report 5155434-7 (Version None)
Quarter: 2006Q4

REPORT INFORMATION
  Report Type: 
  Country: None (occurrence: None)
  Receive Date: 20061114
  Receipt Date: 20061103
  Transmission Date: 20070319
  Serious: Yes (Other)
  Sender: FDA-Public Use
  Company Number: 2006136601

PATIENT
  Sex: Female

DRUGS (2)
  1. XANAX [Suspect]
  2. AMBIEN [Suspect]

REACTIONS (4)
  - ANKLE FRACTURE [None]
  - FACIAL BONES FRACTURE [None]
  - FALL [None]
  - FRACTURED SACRUM [None]
